FAERS Safety Report 4791842-1 (Version None)
Quarter: 2005Q4

REPORT INFORMATION
  Report Type: 
  Country: None (occurrence: None)
  Receive Date: 20051005
  Receipt Date: 20050927
  Transmission Date: 20060501
  Serious: Yes (Hospitalization)
  Sender: FDA-Public Use
  Company Number: 2005134045

PATIENT
  Age: 45 Year
  Sex: Female

DRUGS (4)
  1. ATARAX [Suspect]
     Indication: ILL-DEFINED DISORDER
     Dosage: 100 MG (100 MG, 1 IN 1 D), ORAL
     Route: 048
     Dates: start: 20040815, end: 20050612
  2. TERCIAN (CYAMEMAZINE) [Concomitant]
  3. MEDIATOR (BENFLUOREX HYDROCHLORIDE) [Concomitant]
  4. ZOLOFT [Concomitant]

REACTIONS (7)
  - AGITATION [None]
  - ANALGESIC DRUG LEVEL DECREASED [None]
  - DRUG LEVEL BELOW THERAPEUTIC [None]
  - FALL [None]
  - HEAD INJURY [None]
  - HYPONATRAEMIA [None]
  - LOSS OF CONSCIOUSNESS [None]
